FAERS Safety Report 8194542-3 (Version None)
Quarter: 2012Q1

REPORT INFORMATION
  Report Type: 
  Country: None (occurrence: None)
  Receive Date: 20120308
  Receipt Date: 20110609
  Transmission Date: 20120608
  Serious: No
  Sender: FDA-Public Use
  Company Number: US-GLAXOSMITHKLINE-A0930907A

PATIENT
  Age: 69 Year
  Sex: Male

DRUGS (1)
  1. NICORETTE [Suspect]
     Indication: TOBACCO ABUSE
     Dates: start: 20110328

REACTIONS (2)
  - SENSORY DISTURBANCE [None]
  - DRUG ADMINISTRATION ERROR [None]
